FAERS Safety Report 8798807 (Version 2)
Quarter: 2013Q1

REPORT INFORMATION
  Report Type: Spontaneous
  Country: US (occurrence: None)
  Receive Date: 20120914
  Receipt Date: 20121113
  Transmission Date: 20140127
  Serious: Yes (Other)
  Sender: FDA-Public Use
  Company Number: 2012HGS-003706

PATIENT
  Age: 36 Year
  Sex: Female

DRUGS (2)
  1. BENLYSTA [Suspect]
     Indication: SYSTEMIC LUPUS ERYTHEMATOSUS
     Dosage: 1 IN 28 D
     Route: 042
     Dates: start: 20120202
  2. PAXIL (PAROXETINE HYDROCHLORIDE) [Concomitant]

REACTIONS (5)
  - Agitation [None]
  - Screaming [None]
  - Trichotillomania [None]
  - Intentional self-injury [None]
  - Face injury [None]
